FAERS Safety Report 7015516-1 (Version None)
Quarter: 2010Q3

REPORT INFORMATION
  Report Type: 
  Country: None (occurrence: None)
  Receive Date: 20100927
  Receipt Date: 20100917
  Transmission Date: 20110219
  Serious: Yes (Hospitalization)
  Sender: FDA-Public Use
  Company Number: BR-ELI_LILLY_AND_COMPANY-BR201009004919

PATIENT
  Sex: Female
  Weight: 37 kg

DRUGS (3)
  1. FORTEO [Suspect]
     Indication: OSTEOPOROSIS
     Dosage: 20 MG, EACH EVENING
     Route: 065
     Dates: end: 20100901
  2. TYLENOL (CAPLET) [Concomitant]
     Indication: PAIN
     Dosage: UNK, AS NEEDED
     Route: 048
  3. PURAN T4 [Concomitant]
     Indication: THYROID DISORDER
     Dosage: UNK, DAILY (1/D)
     Route: 048

REACTIONS (5)
  - ABDOMINAL PAIN UPPER [None]
  - FALL [None]
  - FEMUR FRACTURE [None]
  - NAUSEA [None]
  - PAIN [None]
